FAERS Safety Report 8559013-0 (Version None)
Quarter: 2012Q3

REPORT INFORMATION
  Report Type: 
  Country: None (occurrence: None)
  Receive Date: 20120802
  Receipt Date: 20120724
  Transmission Date: 20120928
  Serious: Yes (Hospitalization, Other)
  Sender: FDA-Public Use
  Company Number: US-BIOGENIDEC-2011BI039733

PATIENT
  Age: 43 Year
  Sex: Female

DRUGS (2)
  1. AVONEX [Suspect]
     Indication: MULTIPLE SCLEROSIS
     Route: 030
     Dates: start: 19981001, end: 20030801
  2. AVONEX [Suspect]
     Route: 030
     Dates: start: 20030801

REACTIONS (8)
  - SOMNOLENCE [None]
  - THYROID NEOPLASM [None]
  - MULTIPLE SCLEROSIS [None]
  - THROMBOSIS [None]
  - ASTHENIA [None]
  - DEEP VEIN THROMBOSIS [None]
  - HEADACHE [None]
  - JOINT SWELLING [None]
